FAERS Safety Report 15725171 (Version 2)
Quarter: 2021Q2

REPORT INFORMATION
  Report Type: Spontaneous
  Country: FR (occurrence: FR)
  Receive Date: 20181215
  Receipt Date: 20210612
  Transmission Date: 20210716
  Serious: Yes (Hospitalization, Other)
  Sender: FDA-Public Use
  Company Number: FR-AUROBINDO-AUR-APL-2018-027444

PATIENT
  Sex: Female

DRUGS (7)
  1. SKENAN [Suspect]
     Active Substance: MORPHINE SULFATE
     Indication: SUBSTANCE USE
     Dosage: 600 MILLIGRAM, ONCE A DAY
     Route: 042
  2. ATARAX [Concomitant]
     Active Substance: HYDROXYZINE HYDROCHLORIDE
     Indication: PRODUCT USED FOR UNKNOWN INDICATION
     Dosage: UNK
     Route: 065
  3. CODEINE [Suspect]
     Active Substance: CODEINE
     Indication: PRODUCT USED FOR UNKNOWN INDICATION
     Dosage: UNK
     Route: 065
  4. DICODIN [Concomitant]
     Active Substance: DIHYDROCODEINE
     Indication: DRUG WITHDRAWAL MAINTENANCE THERAPY
     Dosage: 12 DOSAGE FORM
     Route: 065
  5. VALIUM [Concomitant]
     Active Substance: DIAZEPAM
     Indication: PRODUCT USED FOR UNKNOWN INDICATION
     Dosage: UNK
     Route: 065
  6. TRAMADOL. [Suspect]
     Active Substance: TRAMADOL
     Indication: PRODUCT USED FOR UNKNOWN INDICATION
     Dosage: 1500 MILLIGRAM, DAILY
     Route: 065
  7. KLIPAL [Suspect]
     Active Substance: ACETAMINOPHEN\CODEINE PHOSPHATE
     Indication: PRODUCT USED FOR UNKNOWN INDICATION
     Dosage: 10 TABLETS IN THE MORNING, 10 TABLETS AT NOON, 10 TABLETS AND HALF IN THE EVENING ()
     Route: 065

REACTIONS (13)
  - Overdose [Unknown]
  - Drug abuse [Unknown]
  - Feeling cold [Unknown]
  - Rhabdomyolysis [Unknown]
  - Drug dependence [Unknown]
  - Depressed mood [Unknown]
  - Insomnia [Unknown]
  - Pallor [Unknown]
  - Oedema peripheral [Unknown]
  - Intentional product use issue [Unknown]
  - Drug diversion [Unknown]
  - Vomiting [Unknown]
  - Loss of consciousness [Recovered/Resolved]

NARRATIVE: CASE EVENT DATE: 202105
